FAERS Safety Report 13658247 (Version 1)
Quarter: 2017Q2

REPORT INFORMATION
  Report Type: Spontaneous
  Country: JP (occurrence: JP)
  Receive Date: 20170616
  Receipt Date: 20170616
  Transmission Date: 20170830
  Serious: Yes (Hospitalization)
  Sender: FDA-Public Use
  Company Number: JP-ORION CORPORATION ORION PHARMA-ENTC2017-0235

PATIENT
  Age: 82 Year
  Sex: Female

DRUGS (5)
  1. STALEVO [Suspect]
     Active Substance: CARBIDOPA\ENTACAPONE\LEVODOPA
     Indication: PARKINSON^S DISEASE
     Route: 048
     Dates: end: 20170529
  2. FP-OD [Concomitant]
     Active Substance: SELEGILINE HYDROCHLORIDE
     Route: 065
     Dates: end: 20170522
  3. CABERGOLINE. [Concomitant]
     Active Substance: CABERGOLINE
     Route: 065
     Dates: end: 20170529
  4. ZONISAMIDE. [Concomitant]
     Active Substance: ZONISAMIDE
     Route: 065
  5. NEUPRO [Concomitant]
     Active Substance: ROTIGOTINE
     Route: 065
     Dates: end: 20170522

REACTIONS (2)
  - Infectious pleural effusion [Recovering/Resolving]
  - General physical health deterioration [Unknown]

NARRATIVE: CASE EVENT DATE: 20170522
